FAERS Safety Report 21227627 (Version 1)
Quarter: 2022Q3

REPORT INFORMATION
  Report Type: Spontaneous
  Country: ES (occurrence: ES)
  Receive Date: 20220818
  Receipt Date: 20220818
  Transmission Date: 20221027
  Serious: Yes (Other)
  Sender: FDA-Public Use
  Company Number: None

PATIENT
  Age: 90 Year
  Sex: Female

DRUGS (10)
  1. FENTANYL [Suspect]
     Active Substance: FENTANYL
     Indication: Fracture
     Dosage: 1.0 PARCHE C/72 HORAS
     Route: 048
     Dates: start: 20181218
  2. PANTOPRAZOLE [Concomitant]
     Active Substance: PANTOPRAZOLE
     Indication: Product used for unknown indication
     Dosage: 20.0 MG DE
     Route: 048
     Dates: start: 20130613
  3. bisoprolol cinfa 2.5 mg tablets EFG [Concomitant]
     Indication: Dyspnoea
     Dosage: 1.25 MG DE
     Route: 048
     Dates: start: 20180515
  4. alopurinol cinfamed 100 mg comprimidos EFG [Concomitant]
     Indication: Gout
     Dosage: 100.0 MG DE
     Route: 048
     Dates: start: 20121003
  5. FUROSEMIDA NORMON 40 MG COMPRIMIDOS EFG [Concomitant]
     Indication: Dyspnoea
     Dosage: 40.0 MG A-DE
     Route: 048
     Dates: start: 20210923
  6. BRINTELLIX [Concomitant]
     Active Substance: VORTIOXETINE HYDROBROMIDE
     Indication: Depression
     Dosage: 5.0 MG DE
     Route: 048
     Dates: start: 20220517
  7. Nolotil 575 mg capsulas duras [Concomitant]
     Indication: Fracture
     Dosage: 575.0 MG C/12 H
     Route: 048
     Dates: start: 20200213
  8. HIDROFEROL 0,266 MG SOLUCION ORAL [Concomitant]
     Indication: Fracture
     Dosage: 16000.0 UI C/15 DIAS
     Route: 048
     Dates: start: 20170318
  9. ENALAPRIL MALEATE [Concomitant]
     Active Substance: ENALAPRIL MALEATE
     Indication: Dyspnoea
     Dosage: 5.0 MG DE
     Route: 048
     Dates: start: 20211002
  10. Paracetamol Aurovitas Spain 650 mg comprimidos EFG [Concomitant]
     Indication: Spinal osteoarthritis
     Dosage: 650.0 MG C/12 H
     Route: 048
     Dates: start: 20200213

REACTIONS (3)
  - Product administration error [Recovering/Resolving]
  - Somnolence [Recovering/Resolving]
  - Off label use [Unknown]

NARRATIVE: CASE EVENT DATE: 20220711
